FAERS Safety Report 7413097-1 (Version None)
Quarter: 2011Q2

REPORT INFORMATION
  Report Type: 
  Country: None (occurrence: None)
  Receive Date: 20110413
  Receipt Date: 20110411
  Transmission Date: 20111010
  Serious: Yes (Hospitalization)
  Sender: FDA-Public Use
  Company Number: CH-PFIZER INC-2011079720

PATIENT
  Age: 77 Year
  Sex: Male
  Weight: 82 kg

DRUGS (5)
  1. NORVASC [Suspect]
     Dosage: 5 MG, 1X/DAY
     Route: 048
  2. XARELTO [Interacting]
     Dosage: 10 MG, 1X/DAY
     Route: 048
     Dates: start: 20110131, end: 20110302
  3. BISOPROLOL FUMARATE AND HYDROCHLOROTHIAZIDE [Concomitant]
     Dosage: 10 MG/25 MG, 1X/DAY
     Route: 048
  4. DAFALGAN [Concomitant]
     Dosage: 1 G, 3X/DAY
  5. DERMOVATE [Concomitant]
     Dosage: 1 DF, ALTERNATE DAY
     Route: 061

REACTIONS (8)
  - CONVULSION [None]
  - HEMIPARESIS [None]
  - DYSARTHRIA [None]
  - HAEMOGLOBIN DECREASED [None]
  - CEREBRAL HAEMORRHAGE [None]
  - RENAL IMPAIRMENT [None]
  - DRUG INTERACTION [None]
  - HAEMORRHAGIC CEREBRAL INFARCTION [None]
